FAERS Safety Report 7017130-0 (Version None)
Quarter: 2010Q3

REPORT INFORMATION
  Report Type: 
  Country: None (occurrence: None)
  Receive Date: 20100928
  Receipt Date: 20100831
  Transmission Date: 20110219
  Serious: Yes (Hospitalization)
  Sender: FDA-Public Use
  Company Number: US-BIOGENIDEC-2010BI013980

PATIENT
  Age: 39 Year
  Sex: Male

DRUGS (13)
  1. TYSABRI [Suspect]
     Indication: MULTIPLE SCLEROSIS
     Route: 042
     Dates: start: 20071001, end: 20100318
  2. PROVIGIL [Concomitant]
     Route: 048
  3. FLOMAX [Concomitant]
     Route: 048
  4. ZANAFLEX [Concomitant]
     Route: 048
  5. VITAMIN D [Concomitant]
  6. CALCIUM [Concomitant]
  7. CLONAZEPAM [Concomitant]
  8. CLONAZEPAM [Concomitant]
  9. VITAMIN D3 [Concomitant]
  10. LEXAPRO [Concomitant]
  11. LAMISIL [Concomitant]
  12. AMBIEN [Concomitant]
  13. DALFAMPRIDINE [Concomitant]

REACTIONS (5)
  - ATRIAL FIBRILLATION [None]
  - CANDIDIASIS [None]
  - CLOSTRIDIUM DIFFICILE COLITIS [None]
  - PNEUMONITIS [None]
  - PROGRESSIVE MULTIFOCAL LEUKOENCEPHALOPATHY [None]
